FAERS Safety Report 13849102 (Version 7)
Quarter: 2018Q1

REPORT INFORMATION
  Report Type: Spontaneous
  Country: US (occurrence: US)
  Receive Date: 20170809
  Receipt Date: 20180110
  Transmission Date: 20180508
  Serious: Yes (Hospitalization, Other)
  Sender: FDA-Public Use
  Company Number: PHEH2017US024514

PATIENT
  Age: 61 Year
  Sex: Female

DRUGS (4)
  1. AFINITOR [Suspect]
     Active Substance: EVEROLIMUS
     Indication: RENAL CELL CARCINOMA
     Dosage: UNK
     Route: 048
  2. LENVATINIB [Suspect]
     Active Substance: LENVATINIB
     Dosage: 18 MG, QD
     Route: 048
  3. LENVATINIB [Suspect]
     Active Substance: LENVATINIB
     Indication: RENAL CANCER
     Dosage: 14 MG, QD
     Route: 048
     Dates: start: 20170620
  4. LENVATINIB [Suspect]
     Active Substance: LENVATINIB
     Dosage: 10 MG, QD
     Route: 048
     Dates: start: 20171027

REACTIONS (20)
  - Hepatic enzyme increased [Unknown]
  - Lymphocyte count decreased [Unknown]
  - Hepatic failure [Recovered/Resolved]
  - Pain in extremity [Unknown]
  - Haematocrit decreased [Unknown]
  - Weight decreased [Recovering/Resolving]
  - Anaemia [Unknown]
  - Faeces discoloured [Recovering/Resolving]
  - Myalgia [Recovering/Resolving]
  - Diarrhoea [Recovering/Resolving]
  - Hypertension [Recovering/Resolving]
  - Peripheral swelling [Unknown]
  - Incorrect dose administered [Unknown]
  - Hypokalaemia [Unknown]
  - Haematuria [Unknown]
  - Dysgeusia [Not Recovered/Not Resolved]
  - Flank pain [Unknown]
  - Palmar erythema [Unknown]
  - Pollakiuria [Unknown]
  - Haemoglobin decreased [Unknown]

NARRATIVE: CASE EVENT DATE: 20170821
